FAERS Safety Report 7806071-4 (Version None)
Quarter: 2011Q4

REPORT INFORMATION
  Report Type: 
  Country: None (occurrence: None)
  Receive Date: 20111011
  Receipt Date: 20110930
  Transmission Date: 20120403
  Serious: Yes (Hospitalization)
  Sender: FDA-Public Use
  Company Number: CA-JNJFOC-20111001665

PATIENT
  Sex: Female
  Weight: 68.9 kg

DRUGS (3)
  1. CITALOPRAM [Concomitant]
     Route: 065
  2. REMICADE [Suspect]
     Indication: COLITIS ULCERATIVE
     Route: 042
     Dates: start: 20110307
  3. IMURAN [Concomitant]
     Route: 065

REACTIONS (2)
  - VOMITING [None]
  - DIARRHOEA [None]
